FAERS Safety Report 19115462 (Version 1)
Quarter: 2021Q2

REPORT INFORMATION
  Report Type: Spontaneous
  Country: US (occurrence: US)
  Receive Date: 20210409
  Receipt Date: 20210409
  Transmission Date: 20210717
  Serious: No
  Sender: FDA-Public Use
  Company Number: US-SA-2021SA115411

PATIENT
  Sex: Female

DRUGS (6)
  1. COPAXONE [Concomitant]
     Active Substance: GLATIRAMER ACETATE
  2. OCREVUS [Concomitant]
     Active Substance: OCRELIZUMAB
  3. REBIF [Concomitant]
     Active Substance: INTERFERON BETA-1A
  4. VUMERITY [Suspect]
     Active Substance: DIROXIMEL FUMARATE
  5. AUBAGIO [Suspect]
     Active Substance: TERIFLUNOMIDE
     Indication: MULTIPLE SCLEROSIS
     Route: 048
  6. TECFIDERA [Concomitant]
     Active Substance: DIMETHYL FUMARATE

REACTIONS (2)
  - Pain [Unknown]
  - Drug ineffective [Unknown]
